FAERS Safety Report 10906813 (Version 1)
Quarter: 2015Q1

REPORT INFORMATION
  Report Type: Spontaneous
  Country: US (occurrence: None)
  Receive Date: 20150309
  Receipt Date: 20150309
  Transmission Date: 20150721
  Serious: No
  Sender: FDA-Public Use
  Company Number: None

PATIENT
  Sex: Female

DRUGS (1)
  1. BUPROPION [Suspect]
     Active Substance: BUPROPION
     Indication: MAJOR DEPRESSION
     Dosage: 1 TAB EVERY AM
     Route: 048
     Dates: start: 20140114

REACTIONS (4)
  - Agitation [None]
  - Rebound effect [None]
  - Depression [None]
  - Product substitution issue [None]
